FAERS Safety Report 12156290 (Version 1)
Quarter: 2016Q1

REPORT INFORMATION
  Report Type: Spontaneous
  Country: US (occurrence: US)
  Receive Date: 20160307
  Receipt Date: 20160307
  Transmission Date: 20160526
  Serious: Yes (Hospitalization)
  Sender: FDA-Public Use
  Company Number: US-TAIHO ONCOLOGY INC-EU-2016-00369

PATIENT
  Age: 61 Year
  Sex: Female

DRUGS (1)
  1. LONSURF [Suspect]
     Active Substance: TIPIRACIL HYDROCHLORIDE\TRIFLURIDINE
     Indication: COLON CANCER
     Dosage: CURRENT CYCLE 2 STARTED ON 27/JAN/2016
     Route: 048
     Dates: end: 20160130

REACTIONS (1)
  - Tumour exudation [Recovered/Resolved]

NARRATIVE: CASE EVENT DATE: 20160203
